FAERS Safety Report 6619219-4 (Version None)
Quarter: 2010Q1

REPORT INFORMATION
  Report Type: 
  Country: None (occurrence: None)
  Receive Date: 20100308
  Receipt Date: 20100302
  Transmission Date: 20100710
  Serious: Yes (Hospitalization, Disabling)
  Sender: FDA-Public Use
  Company Number: FR-MERCK-1003FRA00001

PATIENT
  Age: 24 Year
  Sex: Male

DRUGS (1)
  1. FOSAMAX [Suspect]
     Indication: GROIN PAIN
     Route: 048
     Dates: start: 20090829, end: 20090901

REACTIONS (2)
  - OFF LABEL USE [None]
  - RHABDOMYOLYSIS [None]
